FAERS Safety Report 6088143-0 (Version None)
Quarter: 2009Q1

REPORT INFORMATION
  Report Type: 
  Country: None (occurrence: None)
  Receive Date: 20090218
  Receipt Date: 20090205
  Transmission Date: 20090719
  Serious: Yes (Death, Hospitalization)
  Sender: FDA-Public Use
  Company Number: 2008-03886

PATIENT
  Age: 56 Year
  Sex: Male

DRUGS (10)
  1. VELCADE [Suspect]
     Indication: MULTIPLE MYELOMA
     Dosage: 1.3 MG/M2 UNK UNK
     Dates: start: 20061003, end: 20061124
  2. DEXAMETHASONE TAB [Suspect]
     Indication: MULTIPLE MYELOMA
     Dosage: 0.25 MG/KG UNK UNK
     Dates: start: 20061003, end: 20061125
  3. CYCLOPHOSPHAMIDE [Suspect]
     Indication: MULTIPLE MYELOMA
  4. ETOPOSIDE [Suspect]
     Indication: MULTIPLE MYELOMA
  5. CISPLATIN [Suspect]
     Indication: MULTIPLE MYELOMA
  6. DOXORUBICIN HCL [Suspect]
     Indication: MULTIPLE MYELOMA
  7. CYTARABINE [Suspect]
     Indication: MULTIPLE MYELOMA
     Dosage: 50 MG
  8. MELPHALAN (MELPHALAN) [Suspect]
     Indication: MULTIPLE MYELOMA
     Dosage: 0.25 MG/KG UNK UNK
  9. VINCRISTINE [Suspect]
     Indication: MULTIPLE MYELOMA
  10. OMEPRAZOLE [Concomitant]

REACTIONS (10)
  - BLOOD LACTATE DEHYDROGENASE INCREASED [None]
  - BONE LESION [None]
  - CSF PROTEIN INCREASED [None]
  - DISEASE PROGRESSION [None]
  - LABORATORY TEST ABNORMAL [None]
  - METASTASES TO CENTRAL NERVOUS SYSTEM [None]
  - METASTASES TO SPINE [None]
  - PAIN IN EXTREMITY [None]
  - PARAPARESIS [None]
  - PLASMACYTOMA [None]
